FAERS Safety Report 8221976-0 (Version None)
Quarter: 2012Q1

REPORT INFORMATION
  Report Type: 
  Country: None (occurrence: None)
  Receive Date: 20120320
  Receipt Date: 20120312
  Transmission Date: 20120608
  Serious: Yes (Hospitalization)
  Sender: FDA-Public Use
  Company Number: US-PFIZER INC-2012066424

PATIENT
  Sex: Male

DRUGS (6)
  1. PIOGLITAZONE [Suspect]
     Indication: TYPE 2 DIABETES MELLITUS
     Dosage: 30 MG, UNK
     Dates: start: 20110512
  2. BLINDED THERAPY [Suspect]
     Indication: TYPE 2 DIABETES MELLITUS
     Dosage: UNK
     Dates: start: 20110329
  3. ACETYLSALICYLIC ACID [Concomitant]
  4. GLUCOTROL [Suspect]
     Dosage: 5 MG, UNK
     Dates: start: 20111127
  5. NIACIN [Concomitant]
  6. AMIODARONE HCL [Suspect]
     Dosage: UNK

REACTIONS (1)
  - ATRIAL FIBRILLATION [None]
